FAERS Safety Report 22354537 (Version 2)
Quarter: 2023Q2

REPORT INFORMATION
  Report Type: Spontaneous
  Country: US (occurrence: US)
  Receive Date: 20230523
  Receipt Date: 20230608
  Transmission Date: 20230722
  Serious: No
  Sender: FDA-Public Use
  Company Number: US-KARYOPHARM-2023KPT001218

PATIENT

DRUGS (9)
  1. XPOVIO [Suspect]
     Active Substance: SELINEXOR
     Indication: Plasma cell myeloma
     Dosage: 60 MG, WEEKLY FOR 3 WEEKS PER CYCLE
     Route: 048
     Dates: start: 202303
  2. DARZALEX [Concomitant]
     Active Substance: DARATUMUMAB
  3. DEXAMETHASONE [Concomitant]
     Active Substance: DEXAMETHASONE
  4. ELIQUIS [Concomitant]
     Active Substance: APIXABAN
  5. FEXOFENADINE [Concomitant]
     Active Substance: FEXOFENADINE HYDROCHLORIDE
  6. RAMIPRIL [Concomitant]
     Active Substance: RAMIPRIL
  7. TRAMADOL [Concomitant]
     Active Substance: TRAMADOL
  8. VALTREX [Concomitant]
     Active Substance: VALACYCLOVIR HYDROCHLORIDE
  9. ZOFRAN [Concomitant]
     Active Substance: ONDANSETRON HYDROCHLORIDE

REACTIONS (6)
  - Mental impairment [Recovered/Resolved]
  - Hypoaesthesia [Recovered/Resolved]
  - Memory impairment [Unknown]
  - Fatigue [Unknown]
  - Nausea [Recovered/Resolved]
  - Product dose omission issue [Unknown]

NARRATIVE: CASE EVENT DATE: 20230101
